FAERS Safety Report 5586779-4 (Version None)
Quarter: 2008Q1

REPORT INFORMATION
  Report Type: 
  Country: None (occurrence: None)
  Receive Date: 20080110
  Receipt Date: 20071228
  Transmission Date: 20080703
  Serious: Yes (Hospitalization)
  Sender: FDA-Public Use
  Company Number: JP-GENENTECH-253815

PATIENT
  Age: 74 Year
  Sex: Male

DRUGS (6)
  1. BEVACIZUMAB [Suspect]
     Indication: COLON CANCER
     Dosage: 5 MG/KG, QD
     Route: 042
     Dates: start: 20070711, end: 20071205
  2. FLUOROURACIL [Concomitant]
     Indication: COLON CANCER
     Dates: start: 20070711, end: 20070822
  3. FLUOROURACIL [Concomitant]
     Dates: start: 20070711, end: 20071221
  4. OXALIPLATIN [Concomitant]
     Indication: COLON CANCER
     Dates: start: 20070711, end: 20071219
  5. ISOVORIN [Concomitant]
     Indication: COLON CANCER
     Dates: start: 20070711, end: 20071219
  6. WARFARIN SODIUM [Concomitant]
     Indication: DRUG USE FOR UNKNOWN INDICATION

REACTIONS (1)
  - DISSEMINATED INTRAVASCULAR COAGULATION [None]
